FAERS Safety Report 9506569 (Version 1)
Quarter: 2013Q3

REPORT INFORMATION
  Report Type: Spontaneous
  Country: US (occurrence: None)
  Receive Date: 20130905
  Receipt Date: 20130905
  Transmission Date: 20140515
  Serious: Yes (Disabling, Other)
  Sender: FDA-Public Use
  Company Number: None

PATIENT
  Age: 77 Year
  Sex: Female

DRUGS (2)
  1. FORTEO 600MCG/2.4ML PEN ELI LILLY [Suspect]
     Indication: OSTEOPOROSIS
     Dosage: 20MCG DAILY SC
     Route: 058
     Dates: start: 20121024, end: 20130813
  2. XALATAN [Concomitant]

REACTIONS (1)
  - Chronic lymphocytic leukaemia [None]
